FAERS Safety Report 5233594-7 (Version None)
Quarter: 2007Q1

REPORT INFORMATION
  Report Type: 
  Country: None (occurrence: None)
  Receive Date: 20070208
  Receipt Date: 20070131
  Transmission Date: 20070707
  Serious: Yes (Death, Hospitalization)
  Sender: FDA-Public Use
  Company Number: HQWYE040128AUG06

PATIENT
  Sex: Female
  Weight: 62 kg

DRUGS (8)
  1. ENBREL [Suspect]
     Indication: RHEUMATOID ARTHRITIS
     Route: 058
     Dates: start: 20050812, end: 20060822
  2. RHEUMATREX [Concomitant]
     Indication: RHEUMATOID ARTHRITIS
     Dosage: UNKNOWN
     Route: 048
     Dates: start: 20050522, end: 20060812
  3. VOLTAREN-XR [Concomitant]
     Indication: RHEUMATOID ARTHRITIS
     Route: 048
  4. ERYTHROCIN [Concomitant]
     Indication: BRONCHITIS CHRONIC
     Route: 048
     Dates: start: 20060509, end: 20060822
  5. MUCODYNE [Concomitant]
     Indication: BRONCHITIS CHRONIC
     Route: 048
     Dates: start: 20060509, end: 20060822
  6. MUCOSOLVAN [Concomitant]
     Indication: BRONCHITIS CHRONIC
     Route: 048
     Dates: start: 20060509, end: 20060822
  7. PREDONINE [Concomitant]
     Indication: RHEUMATOID ARTHRITIS
     Route: 048
  8. THEOLONG [Concomitant]
     Indication: BRONCHITIS CHRONIC
     Route: 048
     Dates: start: 20060509, end: 20060822

REACTIONS (4)
  - CARDIAC FAILURE [None]
  - LUNG DISORDER [None]
  - PLEURAL EFFUSION [None]
  - PNEUMONIA STAPHYLOCOCCAL [None]
